FAERS Safety Report 9618804 (Version 3)
Quarter: 2013Q4

REPORT INFORMATION
  Report Type: Other
  Country: US (occurrence: US)
  Receive Date: 20131014
  Receipt Date: 20131015
  Transmission Date: 20140711
  Serious: Yes (Hospitalization)
  Sender: FDA-Public Use
  Company Number: US-SHIRE-ALL1-2013-04116

PATIENT
  Age: 7 Year
  Sex: Female

DRUGS (3)
  1. VPRIV [Suspect]
     Indication: GAUCHER^S DISEASE
     Dosage: 1600 IU, 1X/2WKS
     Route: 041
     Dates: start: 20110812, end: 2013
  2. BENADRYL                           /00000402/ [Concomitant]
     Indication: PREMEDICATION
     Dosage: UNK UNK, UNKNOWN
     Route: 065
     Dates: start: 20130607
  3. BENADRYL                           /00000402/ [Concomitant]
     Indication: INFUSION RELATED REACTION

REACTIONS (8)
  - Device related sepsis [Not Recovered/Not Resolved]
  - Adverse drug reaction [Unknown]
  - Tremor [Recovered/Resolved]
  - Chills [Recovered/Resolved]
  - Pyrexia [Unknown]
  - Headache [Unknown]
  - Pruritus [Unknown]
  - Infusion related reaction [Unknown]
